FAERS Safety Report 8517435-8 (Version None)
Quarter: 2012Q3

REPORT INFORMATION
  Report Type: 
  Country: None (occurrence: None)
  Receive Date: 20120718
  Receipt Date: 20120716
  Transmission Date: 20120928
  Serious: No
  Sender: FDA-Public Use
  Company Number: US-PFIZER INC-2012171118

PATIENT
  Sex: Female

DRUGS (2)
  1. ADVIL [Suspect]
     Dosage: 4 DF, UNK
  2. IBUPROFEN [Suspect]
     Dosage: 800 MG, UNK

REACTIONS (1)
  - DRUG INEFFECTIVE [None]
